FAERS Safety Report 9098023 (Version 1)
Quarter: 2013Q1

REPORT INFORMATION
  Report Type: Report from Study
  Country: JP (occurrence: JP)
  Receive Date: 20130212
  Receipt Date: 20130212
  Transmission Date: 20140127
  Serious: Yes (Other)
  Sender: FDA-Public Use
  Company Number: JP-009507513-1208JPN007315

PATIENT
  Age: 66 Year
  Sex: Male
  Weight: 61 kg

DRUGS (12)
  1. PEGINTRON [Suspect]
     Indication: HEPATITIS C
     Dosage: 1.5MCG/KG/WEEK
     Route: 058
     Dates: start: 20120111
  2. REBETOL [Suspect]
     Indication: HEPATITIS C
     Dosage: 800 MG, QD
     Route: 048
     Dates: start: 20120111, end: 20120131
  3. REBETOL [Suspect]
     Dosage: 600 MG, QD
     Route: 048
     Dates: start: 20120201, end: 20120207
  4. REBETOL [Suspect]
     Dosage: 400 MG, QD
     Route: 048
     Dates: start: 20120208, end: 20120215
  5. REBETOL [Suspect]
     Dosage: 400MG/200MG ON ALTERNATE DAYS
     Route: 048
     Dates: start: 20120216, end: 20120222
  6. REBETOL [Suspect]
     Dosage: 200 MG, QD
     Route: 048
     Dates: start: 20120223, end: 20120229
  7. REBETOL [Suspect]
     Dosage: 400 MG, QD
     Route: 048
     Dates: start: 20120314, end: 20120321
  8. REBETOL [Suspect]
     Dosage: 200 MG, QD
     Route: 048
     Dates: start: 20120509, end: 20120612
  9. REBETOL [Suspect]
     Dosage: 400MG/ALTERNATE DAYS
     Route: 048
     Dates: start: 20120613
  10. REBETOL [Suspect]
     Dosage: 200MG/ALTERNATE DAYS
     Route: 048
     Dates: start: 20120613
  11. TELAVIC [Suspect]
     Indication: HEPATITIS C
     Dosage: 2250 MG, QD
     Route: 048
     Dates: start: 20120111, end: 20120229
  12. TELAVIC [Suspect]
     Dosage: 2250 MG, QD
     Route: 048
     Dates: start: 20120314, end: 20120328

REACTIONS (2)
  - Anaemia [Not Recovered/Not Resolved]
  - Haemoglobin decreased [Recovering/Resolving]
